FAERS Safety Report 23346022 (Version 1)
Quarter: 2023Q4

REPORT INFORMATION
  Report Type: Spontaneous
  Country: PL (occurrence: PL)
  Receive Date: 20231228
  Receipt Date: 20231228
  Transmission Date: 20240109
  Serious: Yes (Other)
  Sender: FDA-Public Use
  Company Number: PL-GTI-000010

PATIENT
  Age: 6 Year
  Sex: Female

DRUGS (2)
  1. PREDNISONE [Suspect]
     Active Substance: PREDNISONE
     Indication: Nephrotic syndrome
     Route: 065
  2. ENALAPRIL [Concomitant]
     Active Substance: ENALAPRIL
     Indication: Nephrotic syndrome
     Route: 065

REACTIONS (5)
  - Nephrotic syndrome [Unknown]
  - Blood pressure increased [Recovered/Resolved]
  - Focal segmental glomerulosclerosis [Unknown]
  - Proteinuria [Recovered/Resolved]
  - Gene mutation [Unknown]
